FAERS Safety Report 6235548-0 (Version None)
Quarter: 2009Q2

REPORT INFORMATION
  Report Type: 
  Country: None (occurrence: None)
  Receive Date: 20090618
  Receipt Date: 20081211
  Transmission Date: 20091009
  Serious: No
  Sender: FDA-Public Use
  Company Number: US-ASTRAZENECA-2008UW27846

PATIENT
  Age: 16211 Day
  Sex: Female

DRUGS (1)
  1. RHINOCORT [Suspect]
     Route: 045
     Dates: start: 20031211, end: 20031214

REACTIONS (3)
  - EPISTAXIS [None]
  - HEADACHE [None]
  - NASAL DISCOMFORT [None]
